FAERS Safety Report 16677743 (Version 1)
Quarter: 2019Q3

REPORT INFORMATION
  Report Type: Spontaneous
  Country: US (occurrence: US)
  Receive Date: 20190807
  Receipt Date: 20190807
  Transmission Date: 20191004
  Serious: Yes (Death)
  Sender: FDA-Public Use
  Company Number: US-B.I. PHARMACEUTICALS,INC./RIDGEFIELD-2019-US-001144

PATIENT
  Sex: Male

DRUGS (1)
  1. GILOTRIF [Suspect]
     Active Substance: AFATINIB
     Indication: PRODUCT USED FOR UNKNOWN INDICATION
     Route: 065

REACTIONS (2)
  - Death [Fatal]
  - Drug ineffective [Unknown]
